FAERS Safety Report 8906106 (Version 1)
Quarter: 2012Q4

REPORT INFORMATION
  Report Type: 
  Country: ES (occurrence: ES)
  Receive Date: 20121112
  Receipt Date: 20121112
  Transmission Date: 20130627
  Serious: Yes (Life-Threatening, Other)
  Sender: FDA-Public Use
  Company Number: ES-RANBAXY-2012RR-61824

PATIENT
  Age: 52 Year
  Sex: Female

DRUGS (8)
  1. RISPERIDONE [Suspect]
     Indication: MAJOR DEPRESSION
     Dosage: 3 mg, daily
     Route: 065
  2. FLUOXETINE [Suspect]
     Indication: MAJOR DEPRESSION
     Dosage: UNK
     Route: 065
  3. CLONAZEPAM [Suspect]
     Indication: AKATHISIA
     Dosage: UNK
     Route: 065
  4. PROPRANOLOL [Suspect]
     Indication: AKATHISIA
     Dosage: UNK
     Route: 065
  5. BIPERIDEN [Suspect]
     Indication: AKATHISIA
     Dosage: UNK
     Route: 065
  6. TETRABENAZINE [Suspect]
     Indication: AKATHISIA
     Dosage: UNK
     Route: 065
  7. TRAZODONE [Concomitant]
     Indication: MAJOR DEPRESSION
     Dosage: UNK
     Route: 065
  8. TRAZODONE [Concomitant]
     Indication: MAJOR DEPRESSION
     Dosage: UNK
     Route: 065

REACTIONS (5)
  - Akathisia [Recovered/Resolved]
  - Suicidal ideation [Unknown]
  - Fatigue [Unknown]
  - Somnolence [Unknown]
  - Depressive symptom [Recovered/Resolved]
